FAERS Safety Report 15244838 (Version 1)
Quarter: 2018Q3

REPORT INFORMATION
  Report Type: Spontaneous
  Country: US (occurrence: US)
  Receive Date: 20180806
  Receipt Date: 20180806
  Transmission Date: 20181010
  Serious: Yes (Hospitalization)
  Sender: FDA-Public Use
  Company Number: US-GLENMARK PHARMACEUTICALS-2018GMK036838

PATIENT
  Age: 16 Month
  Sex: Female

DRUGS (3)
  1. TALC [Suspect]
     Active Substance: TALC
     Indication: PRODUCT USED FOR UNKNOWN INDICATION
     Dosage: UNK
     Route: 065
  2. OMEPRAZOLE. [Suspect]
     Active Substance: OMEPRAZOLE
     Indication: PRODUCT USED FOR UNKNOWN INDICATION
     Dosage: 2 MG/ML, UNK
     Route: 065
  3. SODIUM BICARBONATE. [Suspect]
     Active Substance: SODIUM BICARBONATE
     Indication: PRODUCT USED FOR UNKNOWN INDICATION
     Dosage: 15.12 G, UNK; MIXED WITH STERILE WATER
     Route: 065

REACTIONS (15)
  - Accidental overdose [Unknown]
  - Electrocardiogram QT prolonged [Recovered/Resolved]
  - Accidental exposure to product [Unknown]
  - Aspiration [Recovering/Resolving]
  - Respiratory distress [Recovering/Resolving]
  - Diarrhoea [Recovered/Resolved]
  - Electrocardiogram QRS complex prolonged [Recovered/Resolved]
  - Product use issue [Unknown]
  - Product preparation error [Unknown]
  - Metabolic alkalosis [Recovered/Resolved]
  - Hypernatraemia [Recovered/Resolved]
  - Hypokalaemia [Recovered/Resolved]
  - Wrong technique in product usage process [Unknown]
  - Toxicity to various agents [Recovered/Resolved]
  - Retching [Recovered/Resolved]
